FAERS Safety Report 24040086 (Version 1)
Quarter: 2024Q3

REPORT INFORMATION
  Report Type: Spontaneous
  Country: NL (occurrence: NL)
  Receive Date: 20240702
  Receipt Date: 20240702
  Transmission Date: 20241017
  Serious: Yes (Hospitalization, Other)
  Sender: AUROBINDO
  Company Number: NL-AUROBINDO-AUR-APL-2024-031605

PATIENT
  Age: 39 Year
  Sex: Male
  Weight: 65.9 kg

DRUGS (14)
  1. CARBAMAZEPINE [Interacting]
     Active Substance: CARBAMAZEPINE
     Indication: Schizoaffective disorder
     Dosage: 200 MILLIGRAM, TWO TIMES A DAY
     Route: 065
  2. CARBAMAZEPINE [Interacting]
     Active Substance: CARBAMAZEPINE
     Dosage: INCREASED TO 600MG DAILY
     Route: 065
  3. CLOZAPINE [Interacting]
     Active Substance: CLOZAPINE
     Indication: Schizoaffective disorder
     Dosage: UNK
     Route: 065
     Dates: start: 2005, end: 2018
  4. CLOZAPINE [Interacting]
     Active Substance: CLOZAPINE
     Dosage: UNK
     Route: 065
     Dates: start: 2019
  5. CLOZAPINE [Interacting]
     Active Substance: CLOZAPINE
     Dosage: WAS ADJUSTED FROM 600 TO 500MG ONCE DAILY AT THE SAME TIME
     Route: 065
  6. CLOZAPINE [Interacting]
     Active Substance: CLOZAPINE
     Dosage: 550 MILLIGRAM, ONCE A DAY
     Route: 065
  7. CLOZAPINE [Interacting]
     Active Substance: CLOZAPINE
     Dosage: REDUCED TO 450MG ONCE DAILY
     Route: 065
  8. MEMANTINE [Suspect]
     Active Substance: MEMANTINE
     Indication: Schizoaffective disorder
     Dosage: 20 MILLIGRAM
     Route: 065
  9. VALPROATE SODIUM [Suspect]
     Active Substance: VALPROATE SODIUM
     Indication: Schizoaffective disorder
     Dosage: 2G ONCE DAILY
     Route: 065
     Dates: start: 202109
  10. LITHIUM [Suspect]
     Active Substance: LITHIUM
     Indication: Schizoaffective disorder
     Dosage: 1200 MILLIGRAM, AT BED TIME
     Route: 065
     Dates: end: 202105
  11. ZUCLOPENTHIXOL [Suspect]
     Active Substance: ZUCLOPENTHIXOL
     Indication: Schizoaffective disorder
     Dosage: LONG-ACTING INJECTION 200MG EVERY 2 WEEKS
     Route: 065
  12. FLUVOXAMINE [Concomitant]
     Active Substance: FLUVOXAMINE
     Indication: Product used for unknown indication
     Dosage: 25 MILLIGRAM
     Route: 065
  13. FLUVOXAMINE [Concomitant]
     Active Substance: FLUVOXAMINE
     Dosage: 50 MILLIGRAM ONCE DAILY
     Route: 065
  14. GLYCOPYRRONIUM [Concomitant]
     Active Substance: GLYCOPYRRONIUM
     Indication: Product used for unknown indication
     Dosage: 2MG AT BEDTIME
     Route: 065

REACTIONS (7)
  - Constipation [Recovered/Resolved]
  - Ileus paralytic [Recovered/Resolved]
  - Salivary hypersecretion [Recovered/Resolved]
  - Cognitive disorder [Unknown]
  - Rebound effect [Unknown]
  - Drug ineffective [Unknown]
  - Drug interaction [Unknown]

NARRATIVE: CASE EVENT DATE: 20180101
